FAERS Safety Report 6694872-8 (Version None)
Quarter: 2010Q2

REPORT INFORMATION
  Report Type: 
  Country: None (occurrence: None)
  Receive Date: 20100420
  Receipt Date: 20100408
  Transmission Date: 20101027
  Serious: Yes (Hospitalization)
  Sender: FDA-Public Use
  Company Number: 7000991

PATIENT
  Age: 62 Year
  Sex: Female

DRUGS (6)
  1. REBIF [Suspect]
     Indication: MULTIPLE SCLEROSIS
     Dosage: 22 MCG,  IN 1 WK;
     Dates: start: 20041201
  2. MELOXICAM [Concomitant]
  3. PANTOPRAZOLE SODIUM [Concomitant]
  4. CHONDROITIN WITH GLUCOSAMIDE) [Concomitant]
  5. KEFLEX [Concomitant]
  6. FLAGYL [Concomitant]

REACTIONS (1)
  - APPENDICITIS [None]
